FAERS Safety Report 5250708-3 (Version None)
Quarter: 2007Q1

REPORT INFORMATION
  Report Type: 
  Country: None (occurrence: None)
  Receive Date: 20070228
  Receipt Date: 20060622
  Transmission Date: 20070707
  Serious: Yes (Other)
  Sender: FDA-Public Use
  Company Number: US-GLAXOSMITHKLINE-A0610046A

PATIENT
  Age: 42 Year
  Sex: Female

DRUGS (2)
  1. LAMICTAL [Suspect]
     Indication: NEUROFIBROMATOSIS
     Dosage: 150MG THREE TIMES PER DAY
     Route: 048
  2. FELBATOL [Concomitant]

REACTIONS (5)
  - CONVULSION [None]
  - DRUG INEFFECTIVE [None]
  - DYSPNOEA [None]
  - LOSS OF CONSCIOUSNESS [None]
  - PHARMACEUTICAL PRODUCT COMPLAINT [None]
